FAERS Safety Report 15719590 (Version 1)
Quarter: 2018Q4

REPORT INFORMATION
  Report Type: Spontaneous
  Country: US (occurrence: US)
  Receive Date: 20181213
  Receipt Date: 20181213
  Transmission Date: 20190205
  Serious: No
  Sender: FDA-Public Use
  Company Number: US-EMD SERONO-9058128

PATIENT
  Sex: Male

DRUGS (2)
  1. SEROSTIM [Suspect]
     Active Substance: SOMATROPIN
     Indication: PRODUCT USED FOR UNKNOWN INDICATION
  2. SEROSTIM [Suspect]
     Active Substance: SOMATROPIN
     Dosage: DOSE DECREASED

REACTIONS (2)
  - Myalgia [Unknown]
  - Musculoskeletal stiffness [Unknown]
